FAERS Safety Report 7080519-8 (Version None)
Quarter: 2010Q4

REPORT INFORMATION
  Report Type: 
  Country: None (occurrence: None)
  Receive Date: 20101025
  Receipt Date: 20101010
  Transmission Date: 20110411
  Serious: Yes (Other)
  Sender: FDA-Public Use
  Company Number: GB-DEXPHARM-20101574

PATIENT
  Age: 60 Year
  Sex: Female

DRUGS (4)
  1. OMEPRAZOLE [Suspect]
     Indication: GASTRITIS
     Dates: start: 20050201, end: 20080319
  2. BETAHISTINE [Concomitant]
  3. CITALOPRAM [Concomitant]
  4. TRAMADOL HCL [Concomitant]

REACTIONS (3)
  - FATIGUE [None]
  - THIRST [None]
  - TUBULOINTERSTITIAL NEPHRITIS [None]
